FAERS Safety Report 6691398-2 (Version None)
Quarter: 2010Q2

REPORT INFORMATION
  Report Type: 
  Country: None (occurrence: None)
  Receive Date: 20100416
  Receipt Date: 20100403
  Transmission Date: 20101027
  Serious: Yes (Other)
  Sender: FDA-Public Use
  Company Number: 10-035

PATIENT
  Age: 55 Year
  Sex: Male

DRUGS (2)
  1. CEFTRIAXONE [Suspect]
     Indication: WHIPPLE'S DISEASE
     Dosage: 2G/DAY, INTRAVENOUS
     Route: 042
  2. COTRIMOXAZOLE (TRIMETHOPRIM/SULFAMETHOXAZOLE) [Suspect]
     Indication: WHIPPLE'S DISEASE
     Dosage: 160MG/800MG, BID, ORAL
     Route: 048

REACTIONS (6)
  - DRUG RESISTANCE [None]
  - ERYTHEMA [None]
  - IMMUNE RECONSTITUTION SYNDROME [None]
  - NO THERAPEUTIC RESPONSE [None]
  - SKIN NECROSIS [None]
  - SKIN NODULE [None]
